FAERS Safety Report 4359956-8 (Version None)
Quarter: 2004Q2

REPORT INFORMATION
  Report Type: 
  Country: None (occurrence: None)
  Receive Date: 20040513
  Receipt Date: 20040504
  Transmission Date: 20050107
  Serious: Yes (Hospitalization)
  Sender: FDA-Public Use
  Company Number: 2004UW08247

PATIENT
  Age: 83 Year
  Sex: Female

DRUGS (11)
  1. CRESTOR [Suspect]
     Indication: HYPERLIPIDAEMIA
     Dosage: 10 MG PO
     Route: 048
     Dates: start: 20040206, end: 20040418
  2. LEXAPRO [Suspect]
     Indication: DEPRESSION
     Dosage: 10 MG
     Dates: start: 20040413
  3. DIOVAN HCT [Suspect]
  4. CARDIZEM [Concomitant]
  5. XANAX [Concomitant]
  6. PROTONIX [Concomitant]
  7. BIAXIN [Concomitant]
  8. PRINIVIL [Concomitant]
  9. DEXTRA [Concomitant]
  10. THEOSOL [Concomitant]
  11. NITROGLYCERIN [Concomitant]

REACTIONS (5)
  - DEPRESSION [None]
  - HYPONATRAEMIA [None]
  - NAUSEA [None]
  - RHABDOMYOLYSIS [None]
  - VOMITING [None]
